FAERS Safety Report 7000158-4 (Version None)
Quarter: 2010Q3

REPORT INFORMATION
  Report Type: 
  Country: None (occurrence: None)
  Receive Date: 20100920
  Receipt Date: 20100617
  Transmission Date: 20110219
  Serious: No
  Sender: FDA-Public Use
  Company Number: US-ASTRAZENECA-2010SE28482

PATIENT
  Age: 549 Month
  Sex: Female
  Weight: 80.3 kg

DRUGS (7)
  1. SEROQUEL XR [Suspect]
     Indication: DEPRESSION
     Route: 048
  2. SEROQUEL XR [Suspect]
     Route: 048
     Dates: start: 20100401
  3. REGLAN [Concomitant]
  4. LEXAPRO [Concomitant]
  5. AMBIEN [Concomitant]
  6. KLONOPIN [Concomitant]
  7. CORTICOSTEROIDS [Concomitant]

REACTIONS (5)
  - DISCOMFORT [None]
  - HEART RATE ABNORMAL [None]
  - INSOMNIA [None]
  - LIMB DISCOMFORT [None]
  - RESTLESS LEGS SYNDROME [None]
